FAERS Safety Report 5932579-2 (Version None)
Quarter: 2008Q4

REPORT INFORMATION
  Report Type: 
  Country: None (occurrence: None)
  Receive Date: 20081009
  Receipt Date: 20080729
  Transmission Date: 20090506
  Serious: Yes (Other)
  Sender: FDA-Public Use
  Company Number: PHEH2007US13967

PATIENT
  Age: 66 Year
  Sex: Male

DRUGS (8)
  1. ZOMETA [Suspect]
     Indication: PROSTATE CANCER
     Dates: start: 20020101
  2. AREDIA [Suspect]
  3. ATENOLOL [Concomitant]
  4. ASPIRIN [Concomitant]
  5. ZOCOR [Concomitant]
  6. ACTONEL [Concomitant]
  7. LIPITOR [Concomitant]
  8. BENICAR [Concomitant]

REACTIONS (20)
  - ANHEDONIA [None]
  - ANXIETY [None]
  - BONE DISORDER [None]
  - DEFORMITY [None]
  - EMOTIONAL DISTRESS [None]
  - GINGIVAL RECESSION [None]
  - GINGIVAL SWELLING [None]
  - INJURY [None]
  - LOOSE TOOTH [None]
  - ORAL SURGERY [None]
  - OROPHARYNGEAL BLISTERING [None]
  - OSTEOMYELITIS [None]
  - OSTEONECROSIS [None]
  - PAIN [None]
  - PERIODONTITIS [None]
  - PHYSICAL DISABILITY [None]
  - POST PROCEDURAL FISTULA [None]
  - PRIMARY SEQUESTRUM [None]
  - RESORPTION BONE INCREASED [None]
  - TOOTH EXTRACTION [None]
